FAERS Safety Report 24761214 (Version 2)
Quarter: 2024Q4

REPORT INFORMATION
  Report Type: Spontaneous
  Country: US (occurrence: US)
  Receive Date: 20241220
  Receipt Date: 20241225
  Transmission Date: 20250115
  Serious: Yes (Other)
  Sender: ABBVIE
  Company Number: US-ABBVIE-6050498

PATIENT
  Age: 60 Year
  Sex: Female

DRUGS (1)
  1. HUMIRA [Suspect]
     Active Substance: ADALIMUMAB
     Indication: Rheumatoid arthritis
     Route: 058
     Dates: start: 20220102

REACTIONS (7)
  - Tracheostomy [Unknown]
  - Liquid product physical issue [Unknown]
  - Cough [Unknown]
  - Throat clearing [Unknown]
  - Product contamination [Unknown]
  - Tracheostomy tube removal [Unknown]
  - Product storage error [Unknown]

NARRATIVE: CASE EVENT DATE: 20241101
